FAERS Safety Report 4401086-0 (Version None)
Quarter: 2004Q3

REPORT INFORMATION
  Report Type: 
  Country: None (occurrence: None)
  Receive Date: 20040907
  Receipt Date: 20031023
  Transmission Date: 20050211
  Serious: No
  Sender: FDA-Public Use
  Company Number: US-BRISTOL-MYERS SQUIBB COMPANY-12417861

PATIENT
  Age: 79 Year
  Sex: Female
  Weight: 52 kg

DRUGS (7)
  1. COUMADIN [Suspect]
     Indication: ATRIAL FIBRILLATION
     Dosage: 4 MG ON MONDAYS, WED AND FRI; 2 MG ON TU, TH, SAT AND SUN. INTERRUPTED BY PT.
     Route: 048
     Dates: start: 20020401
  2. FUROSEMIDE [Suspect]
     Dosage: CHANGED TO 20MG BID.
     Dates: start: 20020401
  3. POTASSIUM [Concomitant]
     Dates: start: 20020401
  4. ATENOLOL [Concomitant]
     Dates: start: 20020401
  5. VERAPAMIL HCL [Concomitant]
     Dates: start: 20020401
  6. ULTRAM [Concomitant]
  7. CIPRO [Concomitant]

REACTIONS (3)
  - DIZZINESS [None]
  - OEDEMA PERIPHERAL [None]
  - PROTHROMBIN TIME ABNORMAL [None]
